FAERS Safety Report 19318977 (Version 1)
Quarter: 2021Q2

REPORT INFORMATION
  Report Type: Spontaneous
  Country: US (occurrence: US)
  Receive Date: 20210527
  Receipt Date: 20210527
  Transmission Date: 20210717
  Serious: Yes (Disabling)
  Sender: FDA-Public Use
  Company Number: US-TEVA-2021-US-1914861

PATIENT
  Age: 4 Month
  Sex: Male

DRUGS (7)
  1. CARBOPLATIN. [Suspect]
     Active Substance: CARBOPLATIN
     Route: 013
  2. MELPHALAN. [Suspect]
     Active Substance: MELPHALAN
     Indication: CONGENITAL RETINOBLASTOMA
     Dosage: 3MG
     Route: 013
  3. MELPHALAN. [Suspect]
     Active Substance: MELPHALAN
     Dosage: 20MG RECEIVED TWO INJECTIONS
     Route: 050
  4. TOPOTECAN [Suspect]
     Active Substance: TOPOTECAN HYDROCHLORIDE
     Indication: CONGENITAL RETINOBLASTOMA
     Dosage: 0.3 MG
     Route: 013
  5. ETOPOSIDE. [Suspect]
     Active Substance: ETOPOSIDE
     Indication: CONGENITAL RETINOBLASTOMA
     Dosage: 5 CYCLES OF SYSTEMIC CHEMOTHERAPY
     Route: 065
  6. CARBOPLATIN. [Suspect]
     Active Substance: CARBOPLATIN
     Indication: CONGENITAL RETINOBLASTOMA
     Dosage: 5 CYCLES OF SYSTEMIC CHEMOTHERAPY
     Route: 065
  7. VINCRISTINE [Suspect]
     Active Substance: VINCRISTINE
     Indication: CONGENITAL RETINOBLASTOMA
     Dosage: 5 CYCLES OF SYSTEMIC CHEMOTHERAPY
     Route: 065

REACTIONS (1)
  - Retinopathy proliferative [Not Recovered/Not Resolved]
